FAERS Safety Report 5754911-5 (Version None)
Quarter: 2008Q2

REPORT INFORMATION
  Report Type: 
  Country: None (occurrence: None)
  Receive Date: 20080527
  Receipt Date: 20080506
  Transmission Date: 20081010
  Serious: Yes (Hospitalization)
  Sender: FDA-Public Use
  Company Number: 2008AL003695

PATIENT
  Sex: Female

DRUGS (1)
  1. DIGOXIN [Suspect]
     Dosage: 0.125MG

REACTIONS (6)
  - ASTHENIA [None]
  - BLOOD TEST ABNORMAL [None]
  - CARDIAC FAILURE [None]
  - DIZZINESS [None]
  - HEART RATE ABNORMAL [None]
  - THROMBOSIS [None]
